FAERS Safety Report 18118590 (Version 1)
Quarter: 2020Q3

REPORT INFORMATION
  Report Type: Spontaneous
  Country: US (occurrence: US)
  Receive Date: 20200806
  Receipt Date: 20200806
  Transmission Date: 20201103
  Serious: No
  Sender: FDA-Public Use
  Company Number: US-PFIZER INC-2020294570

PATIENT
  Age: 70 Year
  Sex: Female
  Weight: 124.7 kg

DRUGS (1)
  1. CELEBREX [Suspect]
     Active Substance: CELECOXIB
     Indication: OSTEOARTHRITIS
     Dosage: 100 MG, 2X/DAY (100MG CAPSULES ONE IN THE MORNING AND ONE AT NIGHT)

REACTIONS (2)
  - Limb injury [Unknown]
  - Body height decreased [Unknown]
